FAERS Safety Report 5048610-5 (Version None)
Quarter: 2006Q2

REPORT INFORMATION
  Report Type: 
  Country: None (occurrence: None)
  Receive Date: 20060629
  Receipt Date: 20060616
  Transmission Date: 20061013
  Serious: Yes (Hospitalization, Other)
  Sender: FDA-Public Use
  Company Number: 2006BH011014

PATIENT
  Age: 19 Year
  Sex: Male
  Weight: 57.6068 kg

DRUGS (10)
  1. IVEEGAM [Suspect]
     Indication: IMMUNODEFICIENCY COMMON VARIABLE
     Dosage: 15 GM;EVERY 2 WK;IV
     Route: 042
  2. IVEEGAM [Suspect]
     Indication: IMMUNODEFICIENCY CONGENITAL
     Dosage: 15 GM;EVERY 2 WK;IV
     Route: 042
  3. SOLUCORT [Concomitant]
  4. PREDNISONE [Concomitant]
  5. IMURAN [Concomitant]
  6. BUDESONIDE [Concomitant]
  7. PENTASA [Concomitant]
  8. HYDRODIURIL [Concomitant]
  9. METAMUCIL [Concomitant]
  10. BUSCOPAN [Concomitant]

REACTIONS (10)
  - ANXIETY [None]
  - BLOOD PRESSURE DECREASED [None]
  - BLOOD PRESSURE INCREASED [None]
  - DIZZINESS [None]
  - DYSPNOEA [None]
  - HEAD DISCOMFORT [None]
  - NAUSEA [None]
  - PHARYNGEAL OEDEMA [None]
  - SWOLLEN TONGUE [None]
  - TACHYCARDIA [None]
